FAERS Safety Report 7951648-9 (Version None)
Quarter: 2011Q4

REPORT INFORMATION
  Report Type: 
  Country: None (occurrence: None)
  Receive Date: 20111201
  Receipt Date: 20111125
  Transmission Date: 20120403
  Serious: Yes (Hospitalization)
  Sender: FDA-Public Use
  Company Number: DE-SANOFI-AVENTIS-2011SA077569

PATIENT
  Age: 60 Year
  Sex: Female
  Weight: 115 kg

DRUGS (1)
  1. DOCETAXEL [Suspect]
     Indication: BREAST CANCER
     Route: 041
     Dates: start: 20101130, end: 20101130

REACTIONS (1)
  - TREATMENT RELATED SECONDARY MALIGNANCY [None]
